FAERS Safety Report 19487587 (Version 1)
Quarter: 2021Q3

REPORT INFORMATION
  Report Type: Spontaneous
  Country: US (occurrence: US)
  Receive Date: 20210702
  Receipt Date: 20210702
  Transmission Date: 20211014
  Serious: No
  Sender: FDA-Public Use
  Company Number: US-BAYER-2021-166289

PATIENT
  Sex: Female

DRUGS (2)
  1. MIRALAX [Suspect]
     Active Substance: POLYETHYLENE GLYCOL 3350
     Dosage: 2 HIPPING TABLESPOON
     Route: 048
     Dates: start: 202106
  2. PHILLIPS^ [Concomitant]

REACTIONS (1)
  - Incorrect dose administered [Unknown]
